FAERS Safety Report 23806699 (Version 3)
Quarter: 2024Q2

REPORT INFORMATION
  Report Type: Report from Study
  Country: US (occurrence: US)
  Receive Date: 20240502
  Receipt Date: 20240510
  Transmission Date: 20240716
  Serious: Yes (Other)
  Sender: FDA-Public Use
  Company Number: US-002147023-NVSC2024US088523

PATIENT
  Sex: Male

DRUGS (1)
  1. PROMACTA [Suspect]
     Active Substance: ELTROMBOPAG OLAMINE
     Indication: Aplastic anaemia
     Dosage: 75 MG, BID
     Route: 048

REACTIONS (7)
  - Terminal state [Unknown]
  - Neoplasm malignant [Unknown]
  - Feeling hot [Unknown]
  - Fatigue [Unknown]
  - Headache [Unknown]
  - Inappropriate schedule of product administration [Unknown]
  - Therapy non-responder [Unknown]
